FAERS Safety Report 8024964-2 (Version None)
Quarter: 2012Q1

REPORT INFORMATION
  Report Type: 
  Country: None (occurrence: None)
  Receive Date: 20120105
  Receipt Date: 20120103
  Transmission Date: 20120608
  Serious: Yes (Hospitalization)
  Sender: FDA-Public Use
  Company Number: PHHO2011NL04733

PATIENT
  Sex: Female
  Weight: 54.5 kg

DRUGS (4)
  1. EPIRUBICIN [Suspect]
     Indication: BREAST CANCER
     Dosage: 155 MG, UNK
     Route: 042
     Dates: start: 20101111
  2. CYCLOPHOSPHAMIDE [Suspect]
     Indication: BREAST CANCER
     Dosage: 350 MG, UNK
     Dates: start: 20101125
  3. NO TREATMENT RECEIVED [Suspect]
     Indication: BREAST CANCER
     Dosage: NO TREATMENT
  4. FLUOROURACIL [Suspect]
     Indication: BREAST CANCER
     Dosage: 350 MG, UNK
     Route: 042
     Dates: start: 20101125

REACTIONS (1)
  - RESPIRATORY TRACT INFECTION [None]
